FAERS Safety Report 8471590-7 (Version None)
Quarter: 2012Q2

REPORT INFORMATION
  Report Type: 
  Country: None (occurrence: None)
  Receive Date: 20120323
  Receipt Date: 20111003
  Transmission Date: 20120825
  Serious: Yes (Other)
  Sender: FDA-Public Use
  Company Number: 163-21880-11100154

PATIENT
  Age: 67 Year
  Sex: Male
  Weight: 75.3 kg

DRUGS (5)
  1. LENALIDOMIDE [Suspect]
     Indication: MULTIPLE MYELOMA
     Dosage: 25 MG, DAILY FOR 21 DAYS, PO, 10 MG, DAILY FOR 21 DAYS, PO
     Route: 048
     Dates: start: 20110927, end: 20111002
  2. LENALIDOMIDE [Suspect]
     Indication: MULTIPLE MYELOMA
     Dosage: 25 MG, DAILY FOR 21 DAYS, PO, 10 MG, DAILY FOR 21 DAYS, PO
     Route: 048
     Dates: start: 20111001
  3. DEXAMETHASONE [Concomitant]
  4. ZOFRAN [Concomitant]
  5. VELCADE [Concomitant]

REACTIONS (1)
  - ANAEMIA [None]
